FAERS Safety Report 8510132-4 (Version None)
Quarter: 2012Q3

REPORT INFORMATION
  Report Type: 
  Country: None (occurrence: None)
  Receive Date: 20120713
  Receipt Date: 20120709
  Transmission Date: 20120928
  Serious: Yes (Hospitalization)
  Sender: FDA-Public Use
  Company Number: JP-B.I. PHARMACEUTICALS,INC./RIDGEFIELD-2012-BP-09968NB

PATIENT
  Sex: Female
  Weight: 61.15 kg

DRUGS (16)
  1. PRADAXA [Suspect]
     Indication: ATRIAL FIBRILLATION
     Dosage: 220 MG
     Route: 048
     Dates: start: 20120406, end: 20120411
  2. ISONIAZID [Concomitant]
     Indication: TUBERCULOSIS
     Dosage: 200 MG
     Route: 048
     Dates: start: 20110701
  3. DEPAS [Concomitant]
     Indication: INSOMNIA
     Dosage: 1 MG
     Route: 048
     Dates: start: 20100511
  4. ETHAMBUTOL HYDROCHLORIDE [Concomitant]
     Indication: TUBERCULOSIS
     Dosage: 500 MG
     Route: 048
     Dates: start: 20110701
  5. SIMVASTATIN [Concomitant]
     Indication: DYSLIPIDAEMIA
     Dosage: 5 MG
     Route: 048
     Dates: start: 20100511
  6. CEREKINON [Concomitant]
     Indication: GASTROOESOPHAGEAL REFLUX DISEASE
     Dosage: 300 MG
     Route: 048
     Dates: start: 20100511
  7. CELEBREX [Concomitant]
     Indication: BACK PAIN
     Route: 065
  8. ASPIRIN [Concomitant]
     Indication: ATRIAL FIBRILLATION
     Dosage: 100 MG
     Route: 048
     Dates: start: 20100511
  9. DIGOXIN [Concomitant]
     Indication: ATRIAL FIBRILLATION
     Dosage: 0.1 MG
     Route: 048
     Dates: start: 20100511
  10. PYDOXAL [Concomitant]
     Indication: TUBERCULOSIS
     Dosage: 60 MG
     Route: 048
     Dates: start: 20110701
  11. SUNRYTHM [Concomitant]
     Indication: ATRIAL FIBRILLATION
     Dosage: 75 MG
     Route: 048
     Dates: start: 20100511
  12. TENORMIN [Concomitant]
     Indication: ATRIAL FIBRILLATION
     Dosage: 25 MG
     Route: 048
     Dates: start: 20100511
  13. LANSOPRAZOLE [Concomitant]
     Indication: GASTROOESOPHAGEAL REFLUX DISEASE
     Dosage: 15 MG
     Route: 048
     Dates: start: 20100511
  14. KETOPROFEN [Concomitant]
     Indication: BACK PAIN
     Dosage: 30 MG
     Route: 065
     Dates: start: 20100511
  15. LEVOFLOXACIN [Concomitant]
     Indication: TUBERCULOSIS
     Dosage: 500 MG
     Route: 048
     Dates: start: 20110701
  16. EBASTEL OD [Concomitant]
     Indication: SEASONAL ALLERGY
     Dosage: 10 MG
     Route: 048
     Dates: start: 20100511

REACTIONS (3)
  - C-REACTIVE PROTEIN INCREASED [None]
  - WHITE BLOOD CELL COUNT INCREASED [None]
  - LIVER DISORDER [None]
